FAERS Safety Report 21159085 (Version 4)
Quarter: 2022Q4

REPORT INFORMATION
  Report Type: Report from Study
  Country: JP (occurrence: JP)
  Receive Date: 20220802
  Receipt Date: 20221230
  Transmission Date: 20230113
  Serious: Yes (Other)
  Sender: FDA-Public Use
  Company Number: JP-CELLTRION INC.-2022JP012112

PATIENT

DRUGS (30)
  1. INVESTIGATIONAL BIOSIMILARS [Suspect]
     Active Substance: INVESTIGATIONAL BIOSIMILARS
     Indication: HER2 positive gastric cancer
     Dosage: 480 MILLIGRAM, QD
     Route: 041
     Dates: start: 20210329, end: 20210329
  2. INVESTIGATIONAL BIOSIMILARS [Suspect]
     Active Substance: INVESTIGATIONAL BIOSIMILARS
     Dosage: 366 MILLIGRAM, QD
     Route: 041
     Dates: start: 20210420, end: 20210420
  3. INVESTIGATIONAL BIOSIMILARS [Suspect]
     Active Substance: INVESTIGATIONAL BIOSIMILARS
     Dosage: 366 MILLIGRAM, QD
     Route: 041
     Dates: start: 20210511, end: 20210511
  4. INVESTIGATIONAL BIOSIMILARS [Suspect]
     Active Substance: INVESTIGATIONAL BIOSIMILARS
     Dosage: 366 MILLIGRAM, QD
     Route: 041
     Dates: start: 20210601, end: 20210601
  5. INVESTIGATIONAL BIOSIMILARS [Suspect]
     Active Substance: INVESTIGATIONAL BIOSIMILARS
     Dosage: 366 MILLIGRAM, QD
     Route: 041
     Dates: start: 20210622, end: 20210622
  6. INVESTIGATIONAL BIOSIMILARS [Suspect]
     Active Substance: INVESTIGATIONAL BIOSIMILARS
     Dosage: 366 MILLIGRAM, QD
     Route: 041
     Dates: start: 20210713, end: 20210713
  7. INVESTIGATIONAL BIOSIMILARS [Suspect]
     Active Substance: INVESTIGATIONAL BIOSIMILARS
     Dosage: 366 MILLIGRAM, QD
     Route: 041
     Dates: start: 20210803, end: 20210803
  8. INVESTIGATIONAL BIOSIMILARS [Suspect]
     Active Substance: INVESTIGATIONAL BIOSIMILARS
     Dosage: 366 MILLIGRAM, QD
     Route: 041
     Dates: start: 20210824, end: 20210824
  9. INVESTIGATIONAL BIOSIMILARS [Suspect]
     Active Substance: INVESTIGATIONAL BIOSIMILARS
     Dosage: 366 MILLIGRAM, QD
     Route: 041
     Dates: start: 20210914, end: 20210914
  10. OXALIPLATIN [Suspect]
     Active Substance: OXALIPLATIN
     Indication: HER2 positive gastric cancer
     Dosage: 224 MILLIGRAM, QD
     Route: 041
     Dates: start: 20210329, end: 20210329
  11. OXALIPLATIN [Suspect]
     Active Substance: OXALIPLATIN
     Dosage: 171 MILLIGRAM, QD
     Route: 041
     Dates: start: 20210511, end: 20210511
  12. OXALIPLATIN [Suspect]
     Active Substance: OXALIPLATIN
     Dosage: 171 MILLIGRAM, QD
     Route: 041
     Dates: start: 20210601, end: 20210601
  13. OXALIPLATIN [Suspect]
     Active Substance: OXALIPLATIN
     Dosage: 171 MILLIGRAM, QD
     Route: 041
     Dates: start: 20210622, end: 20210622
  14. OXALIPLATIN [Suspect]
     Active Substance: OXALIPLATIN
     Dosage: 171 MILLIGRAM, QD
     Route: 041
     Dates: start: 20210713, end: 20210713
  15. OXALIPLATIN [Suspect]
     Active Substance: OXALIPLATIN
     Dosage: 171 MILLIGRAM, QD
     Route: 041
     Dates: start: 20210803, end: 20210803
  16. OXALIPLATIN [Suspect]
     Active Substance: OXALIPLATIN
     Dosage: 128 MILLIGRAM, QD
     Route: 041
     Dates: start: 20210824, end: 20210824
  17. OXALIPLATIN [Suspect]
     Active Substance: OXALIPLATIN
     Dosage: 128 MILLIGRAM, QD
     Route: 041
     Dates: start: 20210914, end: 20210914
  18. GIMERACIL\OTERACIL\TEGAFUR [Suspect]
     Active Substance: GIMERACIL\OTERACIL\TEGAFUR
     Indication: HER2 positive gastric cancer
     Dosage: 120 MILLIGRAM, QD
     Route: 048
     Dates: start: 20210329, end: 20210412
  19. GIMERACIL\OTERACIL\TEGAFUR [Suspect]
     Active Substance: GIMERACIL\OTERACIL\TEGAFUR
     Dosage: 120 MILLIGRAM, QD
     Route: 048
     Dates: start: 20210511, end: 20210525
  20. GIMERACIL\OTERACIL\TEGAFUR [Suspect]
     Active Substance: GIMERACIL\OTERACIL\TEGAFUR
     Dosage: 100 MILLIGRAM, QD
     Route: 048
     Dates: start: 20210601, end: 20210615
  21. GIMERACIL\OTERACIL\TEGAFUR [Suspect]
     Active Substance: GIMERACIL\OTERACIL\TEGAFUR
     Dosage: 100 MILLIGRAM, QD
     Route: 048
     Dates: start: 20210622, end: 20210706
  22. GIMERACIL\OTERACIL\TEGAFUR [Suspect]
     Active Substance: GIMERACIL\OTERACIL\TEGAFUR
     Dosage: 100 MILLIGRAM, QD
     Route: 048
     Dates: start: 20210713, end: 20210727
  23. GIMERACIL\OTERACIL\TEGAFUR [Suspect]
     Active Substance: GIMERACIL\OTERACIL\TEGAFUR
     Dosage: UNK UNK, QD
     Route: 048
     Dates: start: 20210803, end: 20210823
  24. GIMERACIL\OTERACIL\TEGAFUR [Suspect]
     Active Substance: GIMERACIL\OTERACIL\TEGAFUR
     Dosage: 80 MILLIGRAM, QD
     Route: 048
  25. GIMERACIL\OTERACIL\TEGAFUR [Suspect]
     Active Substance: GIMERACIL\OTERACIL\TEGAFUR
     Dosage: 80 MILLIGRAM, QD
     Route: 048
     Dates: start: 20210914
  26. IRON [Concomitant]
     Active Substance: IRON
     Indication: Iron deficiency anaemia
     Dosage: UNK
     Dates: start: 20210329, end: 20210408
  27. POTASSIUM GLUCONATE [Concomitant]
     Active Substance: POTASSIUM GLUCONATE
     Indication: Hypokalaemia
     Dosage: UNK
     Dates: start: 20210325, end: 20210531
  28. DECADRON [Concomitant]
     Active Substance: DEXAMETHASONE
     Indication: HER2 positive gastric cancer
     Dosage: UNK
     Dates: start: 20210330, end: 20210401
  29. PRIMPERAN [Concomitant]
     Active Substance: METOCLOPRAMIDE HYDROCHLORIDE
     Indication: HER2 positive gastric cancer
     Dosage: UNK
     Dates: start: 20210330, end: 20210409
  30. XARELTO [Concomitant]
     Active Substance: RIVAROXABAN
     Indication: Prophylaxis
     Dosage: UNK

REACTIONS (10)
  - Hypokalaemia [Recovered/Resolved]
  - Neuropathy peripheral [Recovering/Resolving]
  - Haemoglobin decreased [Recovered/Resolved]
  - Hypoalbuminaemia [Recovering/Resolving]
  - Diarrhoea [Recovered/Resolved]
  - Diarrhoea [Recovering/Resolving]
  - Diarrhoea [Recovering/Resolving]
  - Anaemia [Unknown]
  - Fatigue [Recovering/Resolving]
  - Underdose [Unknown]

NARRATIVE: CASE EVENT DATE: 20210406
